FAERS Safety Report 8570481-0 (Version None)
Quarter: 2012Q3

REPORT INFORMATION
  Report Type: 
  Country: None (occurrence: None)
  Receive Date: 20120803
  Receipt Date: 20120723
  Transmission Date: 20120928
  Serious: No
  Sender: FDA-Public Use
  Company Number: US-ASTRAZENECA-2012SE51834

PATIENT
  Age: 58 Year
  Sex: Female

DRUGS (2)
  1. SEROQUEL XR [Suspect]
     Indication: BIPOLAR DISORDER
     Route: 048
     Dates: start: 20110901
  2. LITHIUM CARBONATE [Concomitant]

REACTIONS (2)
  - HALLUCINATION, AUDITORY [None]
  - DRUG DOSE OMISSION [None]
